FAERS Safety Report 23836630 (Version 1)
Quarter: 2024Q2

REPORT INFORMATION
  Report Type: Spontaneous
  Country: DE (occurrence: DE)
  Receive Date: 20240509
  Receipt Date: 20240509
  Transmission Date: 20240716
  Serious: Yes (Other)
  Sender: FDA-Public Use
  Company Number: DE-ROCHE-3546324

PATIENT
  Sex: Female

DRUGS (3)
  1. FEBUXOSTAT [Suspect]
     Active Substance: FEBUXOSTAT
     Indication: Chronic lymphocytic leukaemia
     Dosage: UNK
     Route: 065
  2. OBINUTUZUMAB [Suspect]
     Active Substance: OBINUTUZUMAB
     Indication: Chronic lymphocytic leukaemia
     Dosage: 100 MILLIGRAM
     Route: 042
  3. CORTISONE [Suspect]
     Active Substance: CORTISONE
     Indication: Chronic lymphocytic leukaemia
     Dosage: UNK
     Route: 065

REACTIONS (2)
  - Tumour lysis syndrome [Unknown]
  - Infusion related reaction [Unknown]
